FAERS Safety Report 4525236-0 (Version None)
Quarter: 2004Q4

REPORT INFORMATION
  Report Type: 
  Country: None (occurrence: None)
  Receive Date: 20041213
  Receipt Date: 20041201
  Transmission Date: 20050328
  Serious: Yes (Hospitalization)
  Sender: FDA-Public Use
  Company Number: BE-JNJFOC-20041201139

PATIENT
  Age: 3 Year
  Sex: Male

DRUGS (4)
  1. PREPULSID [Suspect]
     Route: 049
  2. PREPULSID [Suspect]
     Route: 049
  3. PREPULSID [Suspect]
     Route: 049
  4. PREPULSID [Suspect]
     Indication: GASTROOESOPHAGEAL REFLUX DISEASE
     Route: 049

REACTIONS (1)
  - FUNDOPLICATION [None]
